FAERS Safety Report 10974120 (Version 4)
Quarter: 2015Q3

REPORT INFORMATION
  Report Type: Report from Study
  Country: GB (occurrence: GB)
  Receive Date: 20150401
  Receipt Date: 20150720
  Transmission Date: 20151125
  Serious: Yes (Other)
  Sender: FDA-Public Use
  Company Number: GB-AMGEN-GBRNI2015031044

PATIENT
  Age: 11 Year
  Sex: Female
  Weight: 24 kg

DRUGS (8)
  1. FOLIC ACID. [Concomitant]
     Active Substance: FOLIC ACID
     Dosage: 5 MG, WEEKLY, ONCE PER WEEK
  2. PREDNISOLONE. [Concomitant]
     Active Substance: PREDNISOLONE
     Indication: CHORIORETINITIS
     Dosage: 5 MG, WEEKLY, ONCE PER WEEK
  3. RANITIDINE [Concomitant]
     Active Substance: RANITIDINE\RANITIDINE HYDROCHLORIDE
     Dosage: 1 UNK, 2X/DAY
  4. ETANERCEPT [Suspect]
     Active Substance: ETANERCEPT
     Indication: JUVENILE IDIOPATHIC ARTHRITIS
     Dosage: 12.5 MG, 2X/WEEK
     Route: 065
     Dates: start: 20060711, end: 20071115
  5. METHOTREXATE [Concomitant]
     Active Substance: METHOTREXATE
     Dosage: 15 MG, WEEKLY, ONCE PER WEEK
     Dates: start: 20061128
  6. PIROXICAM. [Concomitant]
     Active Substance: PIROXICAM
     Dosage: UNK
  7. MAXIDEX [Concomitant]
     Active Substance: DEXAMETHASONE
     Dosage: UNK, 3X/DAY IN BOTH EYES
  8. PREDNISOLONE. [Concomitant]
     Active Substance: PREDNISOLONE
     Dosage: 25 MG ONCE DAILY

REACTIONS (3)
  - Chorioretinitis [Not Recovered/Not Resolved]
  - Vitritis [Not Recovered/Not Resolved]
  - Chorioretinitis [Not Recovered/Not Resolved]

NARRATIVE: CASE EVENT DATE: 20070619
